FAERS Safety Report 8178700-X (Version None)
Quarter: 2012Q1

REPORT INFORMATION
  Report Type: 
  Country: None (occurrence: None)
  Receive Date: 20120301
  Receipt Date: 20120221
  Transmission Date: 20120608
  Serious: Yes (Other)
  Sender: FDA-Public Use
  Company Number: US-ASTRAZENECA-2012SE04231

PATIENT
  Age: 69 Year
  Sex: Female
  Weight: 70.3 kg

DRUGS (8)
  1. VENTOLIN [Concomitant]
     Indication: CHRONIC OBSTRUCTIVE PULMONARY DISEASE
     Route: 055
  2. SEROQUEL [Suspect]
     Indication: BIPOLAR DISORDER
     Route: 048
     Dates: start: 20100101
  3. CITALOPRAM HYDROBROMIDE [Concomitant]
     Indication: BACK PAIN
  4. TRAMADOL HCL [Concomitant]
     Indication: BACK PAIN
  5. NIFEDIPINE [Concomitant]
     Indication: CEREBROVASCULAR ACCIDENT
  6. SEROQUEL [Suspect]
     Indication: ANXIETY
     Route: 048
     Dates: start: 20100101
  7. LOVASTATIN [Concomitant]
     Indication: BLOOD CHOLESTEROL ABNORMAL
  8. SYMBICORT [Suspect]
     Indication: CHRONIC OBSTRUCTIVE PULMONARY DISEASE
     Dosage: 160/4.5 MCG, TWO TIMES A DAY
     Route: 055
     Dates: start: 20100101

REACTIONS (5)
  - MUSCLE STRAIN [None]
  - DEPRESSION [None]
  - MALAISE [None]
  - OFF LABEL USE [None]
  - PNEUMONIA [None]
